FAERS Safety Report 5025046-4 (Version None)
Quarter: 2006Q2

REPORT INFORMATION
  Report Type: 
  Country: None (occurrence: None)
  Receive Date: 20060607
  Receipt Date: 20060603
  Transmission Date: 20061013
  Serious: Yes (Other)
  Sender: FDA-Public Use
  Company Number: 224486

PATIENT
  Age: 74 Year
  Sex: Male
  Weight: 90.7 kg

DRUGS (3)
  1. AVASTIN [Suspect]
     Indication: COLORECTAL CANCER METASTATIC
     Dosage: 5 MG/KG, Q2W, INTRAVENOUS
     Route: 042
     Dates: start: 20040729
  2. CHEMOTHERAPY (ANTINEOPLASTIC AGENT NOS) [Concomitant]
  3. ARANESP [Concomitant]

REACTIONS (4)
  - ANAEMIA [None]
  - BLOOD CULTURE POSITIVE [None]
  - HAEMORRHAGE [None]
  - PANCYTOPENIA [None]
